FAERS Safety Report 7628984-9 (Version None)
Quarter: 2011Q3

REPORT INFORMATION
  Report Type: 
  Country: None (occurrence: None)
  Receive Date: 20110722
  Receipt Date: 20101214
  Transmission Date: 20111222
  Serious: No
  Sender: FDA-Public Use
  Company Number: US-MYLANLABS-2011S1000655

PATIENT
  Sex: Male

DRUGS (3)
  1. CLONIDINE [Suspect]
     Route: 037
  2. ZICONOTIDE [Concomitant]
  3. FENTANYL [Concomitant]

REACTIONS (2)
  - COGNITIVE DISORDER [None]
  - DRUG EFFECT DECREASED [None]
